FAERS Safety Report 8602375-6 (Version None)
Quarter: 2012Q3

REPORT INFORMATION
  Report Type: 
  Country: None (occurrence: None)
  Receive Date: 20120817
  Receipt Date: 20120806
  Transmission Date: 20120928
  Serious: Yes (Hospitalization)
  Sender: FDA-Public Use
  Company Number: US-ROCHE-1098165

PATIENT
  Sex: Female
  Weight: 53.2 kg

DRUGS (7)
  1. FENTANYL [Concomitant]
  2. LORAZEPAM [Concomitant]
     Indication: ANXIETY
     Route: 048
  3. COMPAZINE [Concomitant]
     Indication: NAUSEA
     Route: 048
  4. DECADRON PHOSPHATE [Concomitant]
     Route: 048
  5. AVASTIN [Suspect]
     Indication: BREAST CANCER METASTATIC
     Route: 042
     Dates: start: 20120706, end: 20120803
  6. DILAUDID [Concomitant]
     Indication: PAIN
  7. CARBOPLATIN [Suspect]
     Indication: BREAST CANCER METASTATIC
     Dosage: DOSE: 5 AUC
     Route: 042
     Dates: start: 20120716, end: 20120803

REACTIONS (5)
  - ATAXIA [None]
  - PETECHIAE [None]
  - SOMNOLENCE [None]
  - IIIRD NERVE DISORDER [None]
  - PAIN [None]
